FAERS Safety Report 4279629-X (Version None)
Quarter: 2004Q1

REPORT INFORMATION
  Report Type: 
  Country: None (occurrence: None)
  Receive Date: 20040123
  Receipt Date: 20040107
  Transmission Date: 20041129
  Serious: Yes (Other)
  Sender: FDA-Public Use
  Company Number: DE-JNJFOC-20040101268

PATIENT
  Sex: Male

DRUGS (1)
  1. DURAGESIC [Suspect]
     Indication: DRUG USE FOR UNKNOWN INDICATION
     Dosage: 50 UG/HR, 3 IN 1 TOTAL, INTRAVENOUS
     Route: 042

REACTIONS (2)
  - DRUG ABUSER [None]
  - INTENTIONAL MISUSE [None]
